FAERS Safety Report 6212302-7 (Version None)
Quarter: 2009Q2

REPORT INFORMATION
  Report Type: 
  Country: None (occurrence: None)
  Receive Date: 20090529
  Receipt Date: 20090514
  Transmission Date: 20091009
  Serious: Yes (Hospitalization)
  Sender: FDA-Public Use
  Company Number: PIR # 0905039

PATIENT
  Age: 73 Year
  Sex: Female

DRUGS (1)
  1. HESPAN 6% B. BRAUN MEDICAL INC. [Suspect]

REACTIONS (4)
  - HAEMODIALYSIS [None]
  - MESANGIOPROLIFERATIVE GLOMERULONEPHRITIS [None]
  - RENAL FAILURE ACUTE [None]
  - TUBULOINTERSTITIAL NEPHRITIS [None]
